FAERS Safety Report 6386541-9 (Version None)
Quarter: 2009Q4

REPORT INFORMATION
  Report Type: 
  Country: None (occurrence: None)
  Receive Date: 20091002
  Receipt Date: 20090310
  Transmission Date: 20100525
  Serious: No
  Sender: FDA-Public Use
  Company Number: US-ASTRAZENECA-2009UW06158

PATIENT
  Age: 816 Month
  Sex: Female
  Weight: 99.8 kg

DRUGS (3)
  1. ARIMIDEX [Suspect]
     Indication: BREAST CANCER
     Route: 048
     Dates: start: 20050101
  2. LISINOPRIL [Concomitant]
  3. LIPITOR [Concomitant]

REACTIONS (3)
  - DIZZINESS [None]
  - HYPERTENSION [None]
  - VITREOUS FLOATERS [None]
